FAERS Safety Report 11195447 (Version 1)
Quarter: 2015Q2

REPORT INFORMATION
  Report Type: Spontaneous
  Country: IT (occurrence: IT)
  Receive Date: 20150617
  Receipt Date: 20150617
  Transmission Date: 20150821
  Serious: Yes (Other)
  Sender: FDA-Public Use
  Company Number: IT-ACTAVIS-2015-11750

PATIENT
  Age: 64 Year
  Sex: Male
  Weight: 80 kg

DRUGS (4)
  1. FLUOROURACIL. [Suspect]
     Active Substance: FLUOROURACIL
     Dosage: 4320 MG, CYCLICAL
     Route: 042
     Dates: start: 20130925, end: 20140324
  2. OXALIPLATIN (UNKNOWN) [Suspect]
     Active Substance: OXALIPLATIN
     Indication: ADENOCARCINOMA OF COLON
     Dosage: 150 MG, CYCLICAL
     Route: 042
     Dates: start: 20130925, end: 20140324
  3. FLUOROURACIL. [Suspect]
     Active Substance: FLUOROURACIL
     Indication: ADENOCARCINOMA OF COLON
     Dosage: 720 MG, CYCLICAL
     Route: 042
     Dates: start: 20130925, end: 20140424
  4. LEDERFOLIN [Concomitant]
     Active Substance: LEUCOVORIN CALCIUM
     Indication: PRODUCT USED FOR UNKNOWN INDICATION
     Dosage: 360 MG, UNKNOWN
     Route: 042
     Dates: start: 20130925, end: 20140324

REACTIONS (4)
  - Neutropenia [Recovering/Resolving]
  - Paraesthesia [Recovering/Resolving]
  - Thrombocytopenia [Recovering/Resolving]
  - Hyposideraemia [Recovering/Resolving]

NARRATIVE: CASE EVENT DATE: 20140122
